FAERS Safety Report 23643419 (Version 4)
Quarter: 2024Q2

REPORT INFORMATION
  Report Type: Spontaneous
  Country: US (occurrence: US)
  Receive Date: 20240318
  Receipt Date: 20240430
  Transmission Date: 20240716
  Serious: No
  Sender: FDA-Public Use
  Company Number: US-PFIZER INC-202400051997

PATIENT
  Age: 7 Year
  Sex: Female

DRUGS (1)
  1. GENOTROPIN [Suspect]
     Active Substance: SOMATROPIN
     Indication: Blood growth hormone
     Dosage: 0.6MG INTRAMUSCULAR ONCE DAILY ON HER THIGH, HER BOTTOM
     Route: 030
     Dates: start: 202312

REACTIONS (3)
  - Drug dose omission by device [Not Recovered/Not Resolved]
  - Device leakage [Unknown]
  - Off label use [Unknown]
